FAERS Safety Report 8603412-5 (Version None)
Quarter: 2012Q3

REPORT INFORMATION
  Report Type: 
  Country: None (occurrence: None)
  Receive Date: 20120817
  Receipt Date: 20120807
  Transmission Date: 20120928
  Serious: Yes (Other)
  Sender: FDA-Public Use
  Company Number: ZA-ABBOTT-12P-143-0965651-01

PATIENT
  Sex: Male
  Weight: 22.9 kg

DRUGS (4)
  1. STAVUDINE [Concomitant]
     Indication: HIV INFECTION
     Route: 048
     Dates: start: 20050810
  2. LAMIVUDINE [Concomitant]
     Indication: HIV INFECTION
     Dosage: 75MG AM, 150MG PM
     Route: 048
     Dates: start: 20050810
  3. NORVIR [Suspect]
     Indication: HIV INFECTION
     Dosage: 100MG IN THE MORNING
     Route: 048
     Dates: start: 20050810
  4. ATAZANAVIR [Concomitant]
     Indication: HIV INFECTION
     Dosage: 300MG IN THE MORNING
     Route: 048
     Dates: start: 20050810

REACTIONS (1)
  - BLOOD BILIRUBIN UNCONJUGATED INCREASED [None]
